FAERS Safety Report 24781548 (Version 1)
Quarter: 2024Q4

REPORT INFORMATION
  Report Type: Spontaneous
  Country: US (occurrence: US)
  Receive Date: 20241227
  Receipt Date: 20241227
  Transmission Date: 20250115
  Serious: No
  Sender: MACLEODS
  Company Number: US-MACLEODS PHARMA-MAC2024050803

PATIENT

DRUGS (1)
  1. CLOPIDOGREL [Suspect]
     Active Substance: CLOPIDOGREL BISULFATE
     Indication: Stent placement
     Route: 048
     Dates: start: 20240509

REACTIONS (5)
  - Migraine [Unknown]
  - Head discomfort [Unknown]
  - Tooth extraction [Unknown]
  - CSF test abnormal [Unknown]
  - Headache [Unknown]

NARRATIVE: CASE EVENT DATE: 20240516
